FAERS Safety Report 11539356 (Version 1)
Quarter: 2015Q3

REPORT INFORMATION
  Report Type: Spontaneous
  Country: AT (occurrence: AT)
  Receive Date: 20150923
  Receipt Date: 20150923
  Transmission Date: 20151125
  Serious: Yes (Life-Threatening, Hospitalization)
  Sender: FDA-Public Use
  Company Number: AT-ELI_LILLY_AND_COMPANY-AT201509004601

PATIENT
  Age: 26 Year
  Sex: Female

DRUGS (26)
  1. CISORDINOL ACUTARD [Suspect]
     Active Substance: ZUCLOPENTHIXOL ACETATE
     Dosage: 200 MG, UNK
     Route: 030
     Dates: start: 20050911
  2. TEMESTA                            /00273201/ [Suspect]
     Active Substance: LORAZEPAM
     Dosage: 5 MG, UNK
     Dates: start: 20050910
  3. TEMESTA                            /00273201/ [Suspect]
     Active Substance: LORAZEPAM
     Dosage: 5 MG, UNK
     Route: 048
     Dates: start: 20050912
  4. CISORDINOL ACUTARD [Suspect]
     Active Substance: ZUCLOPENTHIXOL ACETATE
     Indication: PRODUCT USED FOR UNKNOWN INDICATION
     Dosage: 200 MG, UNK
     Route: 030
     Dates: start: 20050908
  5. TEMESTA                            /00273201/ [Suspect]
     Active Substance: LORAZEPAM
     Indication: PRODUCT USED FOR UNKNOWN INDICATION
     Dosage: 2 MG, UNK
     Dates: start: 20050906
  6. TEMESTA                            /00273201/ [Suspect]
     Active Substance: LORAZEPAM
     Dosage: 7 MG, UNK
     Route: 048
     Dates: start: 20050907
  7. DEPAKINE                           /00228501/ [Suspect]
     Active Substance: VALPROIC ACID
     Indication: PRODUCT USED FOR UNKNOWN INDICATION
     Dosage: 1000 MG, UNK
     Route: 048
     Dates: start: 20050912
  8. ZYPREXA [Suspect]
     Active Substance: OLANZAPINE
     Indication: PRODUCT USED FOR UNKNOWN INDICATION
     Dosage: 20 MG, UNK
     Route: 065
     Dates: start: 20050907
  9. CISORDINOL ACUTARD [Suspect]
     Active Substance: ZUCLOPENTHIXOL ACETATE
     Dosage: 150 MG, UNK
     Route: 030
     Dates: start: 20050909
  10. CISORDINOL ACUTARD [Suspect]
     Active Substance: ZUCLOPENTHIXOL ACETATE
     Dosage: 100 MG, UNK
     Route: 030
     Dates: start: 20050915
  11. PROTHIPENDYL [Suspect]
     Active Substance: PROTHIPENDYL
     Dosage: 160 MG, UNK
     Route: 048
     Dates: start: 20050917, end: 20050918
  12. ZYPREXA [Suspect]
     Active Substance: OLANZAPINE
     Dosage: 10 MG, UNK
     Route: 065
     Dates: start: 20050908
  13. CISORDINOL ACUTARD [Suspect]
     Active Substance: ZUCLOPENTHIXOL ACETATE
     Dosage: 100 MG, UNK
     Route: 030
     Dates: start: 20050914
  14. TEMESTA                            /00273201/ [Suspect]
     Active Substance: LORAZEPAM
     Dosage: 6 MG, UNK
     Route: 048
     Dates: start: 20050908
  15. TEMESTA                            /00273201/ [Suspect]
     Active Substance: LORAZEPAM
     Dosage: 4 MG, UNK
     Route: 048
     Dates: start: 20050909
  16. TEMESTA                            /00273201/ [Suspect]
     Active Substance: LORAZEPAM
     Dosage: 4 MG, UNK
     Route: 048
     Dates: start: 20050915, end: 20050916
  17. PROTHIPENDYL [Suspect]
     Active Substance: PROTHIPENDYL
     Dosage: 160 MG, UNK
     Route: 048
     Dates: start: 20050913
  18. PROTHIPENDYL [Suspect]
     Active Substance: PROTHIPENDYL
     Dosage: 80 MG, UNK
     Route: 048
     Dates: start: 20050914
  19. PROTHIPENDYL [Suspect]
     Active Substance: PROTHIPENDYL
     Dosage: 120 MG, QD
     Route: 048
     Dates: start: 20050919
  20. TEMESTA                            /00273201/ [Suspect]
     Active Substance: LORAZEPAM
     Dosage: 2 MG, UNK
     Route: 048
     Dates: start: 20050914
  21. TEMESTA                            /00273201/ [Suspect]
     Active Substance: LORAZEPAM
     Dosage: 3.75 MG, UNK
     Route: 048
     Dates: start: 20050911
  22. TEMESTA                            /00273201/ [Suspect]
     Active Substance: LORAZEPAM
     Dosage: 2.5 MG, UNK
     Route: 048
     Dates: start: 20050917
  23. PROTHIPENDYL [Suspect]
     Active Substance: PROTHIPENDYL
     Indication: PRODUCT USED FOR UNKNOWN INDICATION
     Dosage: 160 MG, UNK
     Route: 048
     Dates: start: 20050911
  24. PROTHIPENDYL [Suspect]
     Active Substance: PROTHIPENDYL
     Dosage: 80 MG, UNK
     Route: 048
     Dates: start: 20050916
  25. ZYPREXA [Suspect]
     Active Substance: OLANZAPINE
     Dosage: 20 MG, UNK
     Route: 065
     Dates: start: 20150913
  26. TEMESTA                            /00273201/ [Suspect]
     Active Substance: LORAZEPAM
     Dosage: 2.5 MG, UNK
     Route: 048
     Dates: start: 20050913

REACTIONS (2)
  - Sedation [Recovered/Resolved]
  - Pulmonary embolism [Recovered/Resolved]

NARRATIVE: CASE EVENT DATE: 20050914
